FAERS Safety Report 8956662 (Version 1)
Quarter: 2012Q4

REPORT INFORMATION
  Report Type: 
  Country: BR (occurrence: BR)
  Receive Date: 20121210
  Receipt Date: 20121210
  Transmission Date: 20130627
  Serious: Yes (Death)
  Sender: FDA-Public Use
  Company Number: PHHY2012BR112976

PATIENT
  Sex: Female

DRUGS (1)
  1. DIOVAN [Suspect]
     Indication: CARDIAC DISORDER
     Dosage: 1.5 DF tablet daily

REACTIONS (2)
  - Death [Fatal]
  - Wrong technique in drug usage process [Unknown]
